FAERS Safety Report 7097330-4 (Version None)
Quarter: 2010Q4

REPORT INFORMATION
  Report Type: 
  Country: None (occurrence: None)
  Receive Date: 20101111
  Receipt Date: 20101102
  Transmission Date: 20110411
  Serious: Yes (Other)
  Sender: FDA-Public Use
  Company Number: US-PURDUE-USA-2010-0053061

PATIENT
  Sex: Male

DRUGS (3)
  1. OXYCONTIN [Suspect]
     Indication: PAIN
     Dosage: 40 MG, BID
     Dates: start: 20101001
  2. OXYCONTIN [Suspect]
     Dosage: 80 MG, BID
     Dates: start: 20101001
  3. OXYCODONE HCL [Concomitant]
     Indication: BREAKTHROUGH PAIN

REACTIONS (3)
  - BREAKTHROUGH PAIN [None]
  - DRUG INEFFECTIVE [None]
  - SICKLE CELL ANAEMIA WITH CRISIS [None]
